FAERS Safety Report 9175819 (Version 1)
Quarter: 2013Q1

REPORT INFORMATION
  Report Type: Spontaneous
  Country: FR (occurrence: FR)
  Receive Date: 20130320
  Receipt Date: 20130320
  Transmission Date: 20140127
  Serious: Yes (Hospitalization)
  Sender: FDA-Public Use
  Company Number: FR-BRISTOL-MYERS SQUIBB COMPANY-17473067

PATIENT
  Age: 61 Year
  Sex: Male

DRUGS (2)
  1. ONGLYZA TABS [Suspect]
     Route: 048
     Dates: start: 201301, end: 201301
  2. STAGID [Suspect]
     Indication: DIABETES MELLITUS
     Dates: start: 201212, end: 201301

REACTIONS (1)
  - Psoriasis [Not Recovered/Not Resolved]
